FAERS Safety Report 11261976 (Version 1)
Quarter: 2015Q3

REPORT INFORMATION
  Report Type: Spontaneous
  Country: US (occurrence: US)
  Receive Date: 20150710
  Receipt Date: 20150710
  Transmission Date: 20151125
  Serious: No
  Sender: FDA-Public Use
  Company Number: US-PURDUE-USA-2015-0122571

PATIENT
  Age: 61 Year
  Sex: Female

DRUGS (1)
  1. BUTRANS [Suspect]
     Active Substance: BUPRENORPHINE
     Indication: PAIN
     Dosage: UNK MCG/HR, WEEKLY
     Route: 062

REACTIONS (7)
  - Pain [Unknown]
  - Inadequate analgesia [Unknown]
  - Application site burn [Unknown]
  - Pruritus [Unknown]
  - Drug effect decreased [Unknown]
  - Feeling hot [Unknown]
  - Drug effect delayed [Unknown]
